FAERS Safety Report 6268240-7 (Version None)
Quarter: 2009Q3

REPORT INFORMATION
  Report Type: 
  Country: None (occurrence: None)
  Receive Date: 20090715
  Receipt Date: 20090709
  Transmission Date: 20100115
  Serious: Yes (Hospitalization)
  Sender: FDA-Public Use
  Company Number: US-JNJFOC-20090703660

PATIENT
  Sex: Female
  Weight: 56.7 kg

DRUGS (3)
  1. SANDOZ FENTANTYL TRANSDERMAL SYATEM [Suspect]
     Indication: BACK PAIN
     Route: 062
  2. DURAGESIC-100 [Suspect]
     Indication: BACK PAIN
     Route: 062
  3. SINGULAIR [Concomitant]
     Indication: MULTIPLE ALLERGIES
     Route: 048

REACTIONS (8)
  - APPLICATION SITE RASH [None]
  - BACK PAIN [None]
  - HEADACHE [None]
  - HYPERHIDROSIS [None]
  - INAPPROPRIATE SCHEDULE OF DRUG ADMINISTRATION [None]
  - INCORRECT DRUG ADMINISTRATION RATE [None]
  - NAUSEA [None]
  - VOMITING [None]
